FAERS Safety Report 10300192 (Version 2)
Quarter: 2014Q3

REPORT INFORMATION
  Report Type: Spontaneous
  Country: US (occurrence: US)
  Receive Date: 20140711
  Receipt Date: 20140711
  Transmission Date: 20150326
  Serious: No
  Sender: FDA-Public Use
  Company Number: US-GILEAD-2013-0084821

PATIENT
  Sex: Female

DRUGS (5)
  1. COUMADIN [Concomitant]
     Active Substance: WARFARIN SODIUM
  2. XANAX [Concomitant]
     Active Substance: ALPRAZOLAM
  3. LETAIRIS [Suspect]
     Active Substance: AMBRISENTAN
     Indication: PRODUCT USED FOR UNKNOWN INDICATION
     Dosage: 5 MG, QD
     Route: 048
     Dates: start: 20070808
  4. REMODULIN [Concomitant]
     Active Substance: TREPROSTINIL
     Dosage: 7 ML MIXED WITH 93 SALINE
  5. LETAIRIS [Suspect]
     Active Substance: AMBRISENTAN
     Dates: start: 20120114

REACTIONS (4)
  - Hearing impaired [Unknown]
  - Ear infection [Unknown]
  - Chest pain [Unknown]
  - Diarrhoea [Not Recovered/Not Resolved]
